FAERS Safety Report 5298019-4 (Version None)
Quarter: 2007Q1

REPORT INFORMATION
  Report Type: 
  Country: None (occurrence: None)
  Receive Date: 20070201
  Receipt Date: 20061025
  Transmission Date: 20070707
  Serious: No
  Sender: FDA-Public Use
  Company Number: 2006PV023904

PATIENT
  Age: 56 Year
  Sex: Male

DRUGS (3)
  1. BYETTA [Suspect]
     Indication: DIABETES MELLITUS NON-INSULIN-DEPENDENT
     Dosage: SEE IMAGE
     Dates: start: 20060621, end: 20060925
  2. BYETTA [Suspect]
     Indication: DIABETES MELLITUS NON-INSULIN-DEPENDENT
     Dosage: SEE IMAGE
     Dates: start: 20060926
  3. METFORMIN HCL [Concomitant]

REACTIONS (5)
  - CHANGE OF BOWEL HABIT [None]
  - COLD SWEAT [None]
  - DIZZINESS [None]
  - FEELING ABNORMAL [None]
  - WEIGHT DECREASED [None]
